FAERS Safety Report 8002179-1 (Version None)
Quarter: 2011Q4

REPORT INFORMATION
  Report Type: 
  Country: None (occurrence: None)
  Receive Date: 20111222
  Receipt Date: 20101101
  Transmission Date: 20120403
  Serious: No
  Sender: FDA-Public Use
  Company Number: US-GLAXOSMITHKLINE-A0891367A

PATIENT
  Age: 31 Year
  Sex: Female

DRUGS (2)
  1. NICOTINE POLACRILEX [Suspect]
     Indication: SMOKING CESSATION THERAPY
     Dosage: 4MG FOUR TIMES PER DAY
     Route: 002
     Dates: start: 20101004, end: 20101005
  2. NICOTINE POLACRILEX [Suspect]
     Dosage: 1GUM FOUR TIMES PER DAY
     Route: 002
     Dates: start: 20101006, end: 20101006

REACTIONS (2)
  - URTICARIA [None]
  - PRURITUS GENERALISED [None]
